FAERS Safety Report 4423291-X (Version None)
Quarter: 2004Q3

REPORT INFORMATION
  Report Type: 
  Country: None (occurrence: None)
  Receive Date: 20040811
  Receipt Date: 20040804
  Transmission Date: 20050211
  Serious: Yes (Hospitalization)
  Sender: FDA-Public Use
  Company Number: ES-GLAXOSMITHKLINE-A0521389A

PATIENT
  Age: 58 Year
  Sex: Female

DRUGS (5)
  1. NAVELBINE [Suspect]
     Indication: BREAST CANCER
     Dosage: 60MG PER DAY
     Route: 042
     Dates: start: 20020724
  2. LORAZEPAM [Concomitant]
  3. OMEPRAZOLE [Concomitant]
  4. GABAPENTIN [Concomitant]
  5. LACTULOSE [Concomitant]

REACTIONS (5)
  - DIABETES MELLITUS INADEQUATE CONTROL [None]
  - DYSPNOEA [None]
  - PLEURAL EFFUSION [None]
  - PYREXIA [None]
  - RESPIRATORY TRACT INFECTION [None]
